FAERS Safety Report 8244639-4 (Version None)
Quarter: 2012Q1

REPORT INFORMATION
  Report Type: 
  Country: None (occurrence: None)
  Receive Date: 20120329
  Receipt Date: 20111126
  Transmission Date: 20120608
  Serious: No
  Sender: FDA-Public Use
  Company Number: US-MYLANLABS-2011S1024484

PATIENT
  Age: 60 Year
  Sex: Female

DRUGS (5)
  1. FENTANYL-100 [Suspect]
     Dosage: CHANGES Q. 72 HOURS.
     Route: 062
     Dates: start: 20111101
  2. NEURONTIN [Concomitant]
     Indication: NEUROPATHY PERIPHERAL
  3. FENTANYL-100 [Suspect]
     Indication: NEURALGIA
     Dosage: CHANGES Q. 72 HOURS.
     Route: 062
     Dates: start: 20111101
  4. ACCUPRIL [Concomitant]
     Indication: BLOOD PRESSURE INCREASED
  5. HYDROCHLOROTHIAZIDE [Concomitant]
     Indication: BLOOD PRESSURE INCREASED

REACTIONS (2)
  - HEADACHE [None]
  - PALPITATIONS [None]
